FAERS Safety Report 12979148 (Version 24)
Quarter: 2022Q4

REPORT INFORMATION
  Report Type: Spontaneous
  Country: BR (occurrence: BR)
  Receive Date: 20161128
  Receipt Date: 20221031
  Transmission Date: 20230113
  Serious: Yes (Other)
  Sender: FDA-Public Use
  Company Number: BR-GLAXOSMITHKLINE-BR2016GSK087434

PATIENT

DRUGS (6)
  1. BENLYSTA [Suspect]
     Active Substance: BELIMUMAB
     Indication: Systemic lupus erythematosus
     Dosage: UNK, 600 MG
     Dates: start: 20160315
  2. BENLYSTA [Suspect]
     Active Substance: BELIMUMAB
     Dosage: UNK, 200 MG
  3. BENLYSTA [Suspect]
     Active Substance: BELIMUMAB
     Dosage: UNK, 400 MG
  4. AZATHIOPRINE [Suspect]
     Active Substance: AZATHIOPRINE
     Indication: Product used for unknown indication
     Dosage: UNK
     Dates: start: 2017
  5. PREDNISONE [Suspect]
     Active Substance: PREDNISONE
     Indication: Product used for unknown indication
     Dosage: UNK
     Dates: start: 2014
  6. COVID-19 VACCINE [Concomitant]
     Indication: COVID-19 prophylaxis
     Dosage: UNK

REACTIONS (20)
  - Varicose vein [Recovered/Resolved]
  - Pneumonia [Unknown]
  - Nasopharyngitis [Unknown]
  - Rhinorrhoea [Unknown]
  - Swelling [Unknown]
  - Influenza [Unknown]
  - Weight increased [Unknown]
  - Urinary tract infection [Unknown]
  - Weight decreased [Unknown]
  - Orthodontic procedure [Unknown]
  - Dental operation [Unknown]
  - Cough [Not Recovered/Not Resolved]
  - Dysphonia [Not Recovered/Not Resolved]
  - Pain [Not Recovered/Not Resolved]
  - Product dose omission issue [Unknown]
  - Inappropriate schedule of product administration [Unknown]
  - Underdose [Unknown]
  - Circumstance or information capable of leading to medication error [Unknown]
  - Product supply issue [Unknown]
  - Social problem [Unknown]

NARRATIVE: CASE EVENT DATE: 20221011
